APPROVED DRUG PRODUCT: ALAWAY
Active Ingredient: KETOTIFEN FUMARATE
Strength: EQ 0.025% BASE
Dosage Form/Route: SOLUTION/DROPS;OPHTHALMIC
Application: A208158 | Product #001
Applicant: BAUSCH AND LOMB INC
Approved: Sep 24, 2020 | RLD: No | RS: No | Type: DISCN